FAERS Safety Report 8300883-9 (Version None)
Quarter: 2012Q2

REPORT INFORMATION
  Report Type: 
  Country: None (occurrence: None)
  Receive Date: 20120417
  Receipt Date: 20120413
  Transmission Date: 20120825
  Serious: Yes (Life-Threatening, Hospitalization, Other)
  Sender: FDA-Public Use
  Company Number: ADR-2011-10721

PATIENT
  Sex: Male

DRUGS (1)
  1. LIORESAL [Suspect]
     Indication: MUSCLE SPASTICITY
     Dosage: 90 MG, DAILY, INTRATHEC
     Route: 037
     Dates: start: 20090301

REACTIONS (3)
  - HYPOTENSION [None]
  - BACK PAIN [None]
  - ABDOMINAL PAIN [None]
